FAERS Safety Report 6423621-3 (Version None)
Quarter: 2009Q4

REPORT INFORMATION
  Report Type: 
  Country: None (occurrence: None)
  Receive Date: 20091102
  Receipt Date: 20091019
  Transmission Date: 20100525
  Serious: Yes (Other)
  Sender: FDA-Public Use
  Company Number: JP-PFIZER INC-2009286480

PATIENT
  Age: 57 Year

DRUGS (3)
  1. CHAMPIX [Suspect]
     Indication: NICOTINE DEPENDENCE
     Dosage: UNK
     Route: 048
     Dates: start: 20091006, end: 20091012
  2. MUCOSTA [Concomitant]
     Dosage: UNK
     Route: 048
     Dates: start: 20070112
  3. LANSOPRAZOLE [Concomitant]
     Dosage: UNK
     Route: 048
     Dates: start: 20070112

REACTIONS (1)
  - HAEMATOCHEZIA [None]
